FAERS Safety Report 10177896 (Version 2)
Quarter: 2014Q2

REPORT INFORMATION
  Report Type: Spontaneous
  Country: FR (occurrence: FR)
  Receive Date: 20140516
  Receipt Date: 20140523
  Transmission Date: 20141212
  Serious: Yes (Life-Threatening, Hospitalization)
  Sender: FDA-Public Use
  Company Number: FR-ASTRAZENECA-2014SE33421

PATIENT
  Age: 70 Year
  Sex: Male
  Weight: 85 kg

DRUGS (21)
  1. INEXIUM [Suspect]
     Route: 048
     Dates: start: 20140305
  2. METHOTREXATE TEVA (NON AZ PRODUCT) [Suspect]
     Route: 065
     Dates: start: 20140308, end: 20140308
  3. METHOTREXATE TEVA (NON AZ PRODUCT) [Suspect]
     Route: 042
     Dates: start: 20140322, end: 20140322
  4. LUCENTIS [Concomitant]
  5. DIAMOX [Concomitant]
     Route: 048
  6. TADENAN [Concomitant]
  7. PERINDOPRIL [Concomitant]
  8. ACULAR 0.5 [Concomitant]
     Dosage: 1 DROP 3 TIMES A DAY
  9. DEXAFREE [Concomitant]
     Dosage: 1 DROP 3 TIMES A DAY
  10. SOLUMEDROL [Concomitant]
     Route: 042
  11. SOLUMEDROL [Concomitant]
     Dates: start: 20140322, end: 20140322
  12. MOVICOL [Concomitant]
  13. LOVENOX [Concomitant]
     Route: 058
  14. ATROPINE [Concomitant]
  15. VINCRISTINE [Concomitant]
     Dates: start: 20140308, end: 20140308
  16. VINCRISTINE [Concomitant]
     Dates: start: 20140323, end: 20140323
  17. PROCARBAZINE [Concomitant]
     Dates: start: 20140309, end: 20140310
  18. CALCIUM FOLINATE [Concomitant]
  19. CALCIUM FOLINATE [Concomitant]
     Dates: start: 20140309
  20. CALCIUM FOLINATE [Concomitant]
     Dates: start: 20140324, end: 20140324
  21. VORAXAZE [Concomitant]
     Dates: start: 20140324, end: 20140324

REACTIONS (13)
  - Drug interaction [Unknown]
  - Overdose [Recovered/Resolved]
  - Renal failure [Not Recovered/Not Resolved]
  - Mucosal inflammation [Recovered/Resolved]
  - Oxygen saturation decreased [Recovered/Resolved]
  - Dyspnoea [Unknown]
  - Blood culture positive [Unknown]
  - Pyrexia [Unknown]
  - Cough [Recovered/Resolved]
  - Hepatocellular injury [Recovering/Resolving]
  - Rash erythematous [Recovered/Resolved]
  - Pancytopenia [Recovered/Resolved]
  - Medication error [Unknown]
